FAERS Safety Report 6892533-3 (Version None)
Quarter: 2010Q3

REPORT INFORMATION
  Report Type: 
  Country: None (occurrence: None)
  Receive Date: 20100731
  Receipt Date: 20080619
  Transmission Date: 20110219
  Serious: No
  Sender: FDA-Public Use
  Company Number: US-PFIZER INC-2008034126

PATIENT
  Sex: Female
  Weight: 56.7 kg

DRUGS (15)
  1. NEURONTIN [Suspect]
     Indication: PAIN
     Route: 048
     Dates: start: 20080311, end: 20080419
  2. K-DUR [Concomitant]
  3. NORVASC [Concomitant]
  4. ATENOLOL [Concomitant]
  5. CLONIDINE [Concomitant]
  6. LEXAPRO [Concomitant]
  7. PREMARIN [Concomitant]
  8. CLONAZEPAM [Concomitant]
  9. TRICOR [Concomitant]
  10. LANTUS [Concomitant]
     Indication: DIABETES MELLITUS
  11. PROTONIX [Concomitant]
  12. CHLORPROMAZINE [Concomitant]
  13. DYAZIDE [Concomitant]
  14. MIACALCIN [Concomitant]
     Indication: OSTEOPOROSIS
  15. LORCET-HD [Concomitant]
     Indication: CHEST PAIN

REACTIONS (2)
  - ORAL PAIN [None]
  - STOMATITIS [None]
